FAERS Safety Report 21247405 (Version 2)
Quarter: 2022Q3

REPORT INFORMATION
  Report Type: Spontaneous
  Country: DE (occurrence: DE)
  Receive Date: 20220824
  Receipt Date: 20220826
  Transmission Date: 20221027
  Serious: Yes (Other)
  Sender: FDA-Public Use
  Company Number: DE-NOVARTISPH-NVSC2022DE188160

PATIENT

DRUGS (1)
  1. METHOTREXATE [Suspect]
     Active Substance: METHOTREXATE
     Indication: Psoriatic arthropathy
     Dosage: 10 MG, QW
     Route: 048

REACTIONS (8)
  - Iridocyclitis [Unknown]
  - Condition aggravated [Unknown]
  - Uveitis [Unknown]
  - Back pain [Not Recovered/Not Resolved]
  - Inflammatory pain [Not Recovered/Not Resolved]
  - C-reactive protein abnormal [Unknown]
  - Psoriasis [Unknown]
  - Drug ineffective [Unknown]

NARRATIVE: CASE EVENT DATE: 20210101
